FAERS Safety Report 8800720 (Version 2)
Quarter: 2015Q2

REPORT INFORMATION
  Report Type: Report from Study
  Country: US (occurrence: US)
  Receive Date: 20120921
  Receipt Date: 20150401
  Transmission Date: 20150821
  Serious: Yes (Death, Other)
  Sender: FDA-Public Use
  Company Number: US-ROCHE-1128483

PATIENT
  Sex: Female

DRUGS (14)
  1. ALOXI [Concomitant]
     Active Substance: PALONOSETRON HYDROCHLORIDE
     Route: 065
  2. DIPHENHYDRAMINE [Concomitant]
     Active Substance: DIPHENHYDRAMINE
     Route: 048
  3. ZOMETA [Concomitant]
     Active Substance: ZOLEDRONIC ACID
     Route: 042
  4. IBUPROFEN. [Concomitant]
     Active Substance: IBUPROFEN
     Route: 048
  5. AVASTIN [Suspect]
     Active Substance: BEVACIZUMAB
     Indication: BREAST CANCER FEMALE
     Route: 042
     Dates: start: 20060112
  6. TAXOL [Concomitant]
     Active Substance: PACLITAXEL
  7. CIMETIDINE [Concomitant]
     Active Substance: CIMETIDINE
     Route: 042
  8. DEXAMETHASONE. [Concomitant]
     Active Substance: DEXAMETHASONE
     Route: 065
  9. HEPARIN [Concomitant]
     Active Substance: HEPARIN SODIUM
     Route: 065
  10. ARANESP [Concomitant]
     Active Substance: DARBEPOETIN ALFA
     Route: 058
  11. PROTONIX (UNITED STATES) [Concomitant]
     Route: 048
  12. MORPHINE [Concomitant]
     Active Substance: MORPHINE
  13. LETROZOLE. [Concomitant]
     Active Substance: LETROZOLE
     Route: 048
  14. ULTRAM [Concomitant]
     Active Substance: TRAMADOL HYDROCHLORIDE
     Route: 048

REACTIONS (13)
  - Decreased appetite [Unknown]
  - Dyspepsia [Recovering/Resolving]
  - Abdominal discomfort [Recovering/Resolving]
  - Catheter site pain [Unknown]
  - Death [Fatal]
  - Hypokalaemia [Recovered/Resolved]
  - Cellulitis [Recovered/Resolved]
  - Ascites [Unknown]
  - Diarrhoea [Recovered/Resolved]
  - Fatigue [Unknown]
  - Dyspnoea exertional [Unknown]
  - Pancytopenia [Unknown]
  - Off label use [Unknown]
